FAERS Safety Report 4268831-9 (Version None)
Quarter: 2004Q1

REPORT INFORMATION
  Report Type: 
  Country: None (occurrence: None)
  Receive Date: 20040109
  Receipt Date: 20030105
  Transmission Date: 20041129
  Serious: Yes (Hospitalization)
  Sender: FDA-Public Use
  Company Number: 2003CG01687

PATIENT
  Age: 68 Year
  Sex: Female
  Weight: 68 kg

DRUGS (19)
  1. MOPRAL [Suspect]
     Dosage: 20 MG DAILY PO
     Route: 048
  2. KETOPROFEN [Suspect]
     Indication: ANKYLOSING SPONDYLITIS
     Dosage: 150 MG BID PO
     Route: 048
  3. DAFALGAN [Suspect]
     Indication: ANKYLOSING SPONDYLITIS
  4. REMICADE [Suspect]
     Indication: ANKYLOSING SPONDYLITIS
     Dosage: 300 MG ONCE IV
     Route: 042
     Dates: start: 20030723, end: 20030723
  5. REMICADE [Suspect]
     Indication: ANKYLOSING SPONDYLITIS
     Dosage: 300 MG ONCE IV
     Route: 042
     Dates: start: 20030808, end: 20030808
  6. REMICADE [Suspect]
     Indication: ANKYLOSING SPONDYLITIS
     Dosage: 300 MG ONCE IV
     Route: 042
     Dates: start: 20030909, end: 20030909
  7. RIFADIN [Suspect]
     Indication: TUBERCULOSIS
     Dosage: 300 MG BID PO
     Route: 048
     Dates: start: 20030515, end: 20031206
  8. RIMIFON [Suspect]
     Indication: TUBERCULOSIS
     Dosage: 30 MG DAILY PO
     Route: 048
     Dates: start: 20030515, end: 20031206
  9. ANAUSIN [Suspect]
     Dosage: 3 DF DAILY PO
     Route: 048
  10. RIVOTRIL [Suspect]
     Dosage: 10 GTT DAILY PO
     Route: 048
  11. FENOFIBRATE [Suspect]
     Dosage: 300 MG DAILY PO
     Route: 048
  12. ALTIZIDE [Suspect]
     Dosage: 1 DF DAILY PO
     Route: 048
  13. ACTONEL [Suspect]
     Dosage: 1 DF WEEK PO
     Route: 048
  14. TOPALGIC ^HOECHST^ [Suspect]
     Dosage: 100 MG QID PO
     Route: 048
  15. LEVOTHYROXINE SODIUM [Suspect]
     Dosage: 100 MG DAILY PO
     Route: 048
  16. PROZAC [Suspect]
     Dosage: 1 DF DAILY PO
     Route: 048
  17. STILNOX [Suspect]
     Dosage: 1 DF DAILY PO
     Route: 048
  18. FORLAX [Suspect]
     Dosage: 3 DF DAILY PO
     Route: 048
  19. OROCAL VITAMIN D [Suspect]
     Dosage: 2 DF DAILY PO
     Route: 048

REACTIONS (2)
  - LEUKOPENIA [None]
  - NEUTROPENIA [None]
